FAERS Safety Report 4659182-9 (Version None)
Quarter: 2005Q2

REPORT INFORMATION
  Report Type: 
  Country: None (occurrence: None)
  Receive Date: 20050510
  Receipt Date: 20050501
  Transmission Date: 20051028
  Serious: Yes (Other)
  Sender: FDA-Public Use
  Company Number: 163-20785-04050583

PATIENT
  Age: 21 Year
  Sex: Female

DRUGS (10)
  1. THALOMID [Suspect]
     Indication: ARTERIOVENOUS MALFORMATION
     Dosage: SEE IMAGE
     Route: 048
     Dates: start: 20030701, end: 20030801
  2. THALOMID [Suspect]
     Indication: ARTERIOVENOUS MALFORMATION
     Dosage: SEE IMAGE
     Route: 048
     Dates: start: 20030801, end: 20040401
  3. THALOMID [Suspect]
     Indication: ARTERIOVENOUS MALFORMATION
     Dosage: SEE IMAGE
     Route: 048
     Dates: start: 20040401, end: 20040523
  4. THALOMID [Suspect]
     Indication: ARTERIOVENOUS MALFORMATION
     Dosage: SEE IMAGE
     Route: 048
     Dates: start: 20040524
  5. CELEBREX [Concomitant]
  6. NEURONTIN [Concomitant]
  7. BACTRIM [Concomitant]
  8. COLACE (DOCUSATE SODIM) [Concomitant]
  9. LEXAPRIL [Concomitant]
  10. LAXATIVES (LAXATIVES) [Concomitant]

REACTIONS (1)
  - BENIGN INTRACRANIAL HYPERTENSION [None]
